FAERS Safety Report 4775957-X (Version None)
Quarter: 2005Q3

REPORT INFORMATION
  Report Type: 
  Country: None (occurrence: None)
  Receive Date: 20050922
  Receipt Date: 20050920
  Transmission Date: 20060218
  Serious: Yes (Hospitalization)
  Sender: FDA-Public Use
  Company Number: FR-GLAXOSMITHKLINE-B0394419A

PATIENT
  Age: 65 Year
  Sex: Male

DRUGS (11)
  1. MELPHALAN [Suspect]
     Indication: MULTIPLE MYELOMA
     Route: 065
     Dates: start: 20050623
  2. FORTUM [Suspect]
     Dosage: 3G PER DAY
     Route: 042
     Dates: start: 20050717, end: 20050730
  3. NEXIUM [Suspect]
     Dosage: 1UNIT PER DAY
     Route: 048
     Dates: start: 20050701, end: 20050801
  4. VFEND [Suspect]
     Dosage: 1UNIT PER DAY
     Route: 048
     Dates: start: 20050718, end: 20050801
  5. AMIKLIN [Suspect]
     Dosage: 1.25G PER DAY
     Route: 042
     Dates: start: 20050717, end: 20050724
  6. VANCOMYCIN [Suspect]
     Dosage: 2G PER DAY
     Route: 042
     Dates: start: 20050702, end: 20050726
  7. ZELITREX [Concomitant]
     Route: 065
  8. ARANESP [Concomitant]
     Route: 065
  9. GRANOCYTE [Concomitant]
     Route: 065
  10. VIT B12 [Concomitant]
     Route: 065
  11. VIT K [Concomitant]
     Route: 065

REACTIONS (7)
  - BONE MARROW DEPRESSION [None]
  - CONJUNCTIVITIS [None]
  - LUNG INFECTION [None]
  - ORAL SOFT TISSUE DISORDER [None]
  - PURPURA [None]
  - RASH ERYTHEMATOUS [None]
  - TOXIC SKIN ERUPTION [None]
